FAERS Safety Report 23540171 (Version 5)
Quarter: 2024Q4

REPORT INFORMATION
  Report Type: Spontaneous
  Country: CA (occurrence: CA)
  Receive Date: 20240219
  Receipt Date: 20241226
  Transmission Date: 20250115
  Serious: Yes (Hospitalization, Other)
  Sender: PURDUE
  Company Number: CA-HEALTHCANVIG-E2B_06822275

PATIENT
  Age: 9 Year
  Sex: Male

DRUGS (48)
  1. METHYLPHENIDATE HYDROCHLORIDE [Interacting]
     Active Substance: METHYLPHENIDATE HYDROCHLORIDE
     Indication: Anxiety
     Dosage: UNK
     Route: 065
  2. METHYLPHENIDATE HYDROCHLORIDE [Interacting]
     Active Substance: METHYLPHENIDATE HYDROCHLORIDE
     Indication: Abnormal behaviour
  3. METHYLPHENIDATE HYDROCHLORIDE [Interacting]
     Active Substance: METHYLPHENIDATE HYDROCHLORIDE
     Indication: Behaviour disorder
  4. ARIPIPRAZOLE [Suspect]
     Active Substance: ARIPIPRAZOLE
     Indication: Anxiety
     Dosage: UNK
     Route: 065
  5. ARIPIPRAZOLE [Suspect]
     Active Substance: ARIPIPRAZOLE
     Indication: Abnormal behaviour
  6. ARIPIPRAZOLE [Suspect]
     Active Substance: ARIPIPRAZOLE
     Indication: Behaviour disorder
  7. LINEZOLID [Suspect]
     Active Substance: LINEZOLID
     Indication: Anti-infective therapy
     Dosage: UNK
     Route: 048
  8. LINEZOLID [Suspect]
     Active Substance: LINEZOLID
     Indication: Peritonitis bacterial
     Dosage: UNK
     Route: 065
  9. LINEZOLID [Suspect]
     Active Substance: LINEZOLID
     Indication: Mycobacterium fortuitum infection
  10. LINEZOLID [Suspect]
     Active Substance: LINEZOLID
     Indication: Device related infection
  11. MOXIFLOXACIN [Suspect]
     Active Substance: MOXIFLOXACIN
     Indication: Anti-infective therapy
     Dosage: UNK
     Route: 048
  12. MOXIFLOXACIN [Suspect]
     Active Substance: MOXIFLOXACIN
     Indication: Evidence based treatment
  13. PREDNISONE [Suspect]
     Active Substance: PREDNISONE
     Indication: Prophylaxis
     Dosage: UNK
     Route: 065
  14. PREDNISONE [Suspect]
     Active Substance: PREDNISONE
     Indication: Donor specific antibody present
  15. PREDNISONE [Suspect]
     Active Substance: PREDNISONE
     Indication: Prophylaxis against transplant rejection
  16. SERTRALINE [Suspect]
     Active Substance: SERTRALINE HYDROCHLORIDE
     Indication: Anxiety
     Dosage: UNK
     Route: 065
  17. SERTRALINE [Suspect]
     Active Substance: SERTRALINE HYDROCHLORIDE
     Indication: Abnormal behaviour
  18. SERTRALINE [Suspect]
     Active Substance: SERTRALINE HYDROCHLORIDE
     Indication: Behaviour disorder
  19. TACROLIMUS [Suspect]
     Active Substance: TACROLIMUS
     Indication: Prophylaxis
     Dosage: UNK (THIS DOSAGE REGIMEN REPORTED 4 TIMES)
     Route: 065
  20. TACROLIMUS [Suspect]
     Active Substance: TACROLIMUS
     Indication: Donor specific antibody present
  21. TACROLIMUS [Suspect]
     Active Substance: TACROLIMUS
     Indication: Immunosuppression
  22. TACROLIMUS [Suspect]
     Active Substance: TACROLIMUS
     Indication: Prophylaxis against transplant rejection
  23. CLOFAZIMINE [Suspect]
     Active Substance: CLOFAZIMINE
     Indication: Mycobacterium fortuitum infection
     Dosage: 50.0 MILLIGRAM, DAILY(1 EVERY 1 DAYS)
     Route: 048
  24. AMIKACIN [Concomitant]
     Active Substance: AMIKACIN
     Indication: Anti-infective therapy
     Dosage: UNK
     Route: 042
  25. AMIKACIN [Concomitant]
     Active Substance: AMIKACIN
     Indication: Evidence based treatment
  26. CEFTAZIDIME [Concomitant]
     Active Substance: CEFTAZIDIME
     Indication: Anti-infective therapy
     Dosage: UNK
     Route: 033
  27. CEFTAZIDIME [Concomitant]
     Active Substance: CEFTAZIDIME
     Indication: Evidence based treatment
  28. CIPROFLOXACIN [Concomitant]
     Active Substance: CIPROFLOXACIN
     Indication: Anti-infective therapy
     Dosage: UNK
     Route: 048
  29. CIPROFLOXACIN [Concomitant]
     Active Substance: CIPROFLOXACIN
     Indication: Peritonitis bacterial
     Dosage: UNK
     Route: 065
  30. CIPROFLOXACIN [Concomitant]
     Active Substance: CIPROFLOXACIN
     Indication: Mycobacterium fortuitum infection
  31. CIPROFLOXACIN [Concomitant]
     Active Substance: CIPROFLOXACIN
     Indication: Device related infection
  32. CLARITHROMYCIN [Concomitant]
     Active Substance: CLARITHROMYCIN
     Indication: Product used for unknown indication
     Dosage: UNK
     Route: 065
  33. DOXYCYCLINE [Concomitant]
     Active Substance: DOXYCYCLINE
     Indication: Product used for unknown indication
     Dosage: UNK
     Route: 065
  34. FLUCONAZOLE [Concomitant]
     Active Substance: FLUCONAZOLE
     Indication: Antifungal prophylaxis
     Dosage: UNK
     Route: 048
  35. IMIPENEM [Concomitant]
     Active Substance: IMIPENEM
     Indication: Anti-infective therapy
     Dosage: UNK
     Route: 042
  36. IMIPENEM [Concomitant]
     Active Substance: IMIPENEM
     Indication: Evidence based treatment
  37. SULFAMETHOXAZOLE\TRIMETHOPRIM [Concomitant]
     Active Substance: SULFAMETHOXAZOLE\TRIMETHOPRIM
     Indication: Product used for unknown indication
     Dosage: UNK
     Route: 048
  38. SULFAMETHOXAZOLE\TRIMETHOPRIM [Concomitant]
     Active Substance: SULFAMETHOXAZOLE\TRIMETHOPRIM
     Indication: Evidence based treatment
  39. SULFAMETHOXAZOLE\TRIMETHOPRIM [Concomitant]
     Active Substance: SULFAMETHOXAZOLE\TRIMETHOPRIM
     Indication: Prophylaxis against transplant rejection
  40. VANCOMYCIN [Concomitant]
     Active Substance: VANCOMYCIN
     Indication: Bacterial infection
     Dosage: UNK
     Route: 033
  41. VANCOMYCIN [Concomitant]
     Active Substance: VANCOMYCIN
     Indication: Evidence based treatment
  42. PREDNISONE [Concomitant]
     Active Substance: PREDNISONE
     Indication: Prophylaxis against transplant rejection
     Dosage: UNK
     Route: 065
  43. THYMOCYTE IMMUNE GLOBULIN NOS [Concomitant]
     Active Substance: THYMOCYTE IMMUNE GLOBULIN NOS
     Indication: Prophylaxis against transplant rejection
     Dosage: UNK
     Route: 065
  44. CEFAZOLIN [Concomitant]
     Active Substance: CEFAZOLIN
     Indication: Evidence based treatment
     Dosage: UNK
     Route: 033
  45. CLOFAZIMINE [Concomitant]
     Active Substance: CLOFAZIMINE
     Indication: Peritonitis bacterial
     Dosage: UNK
     Route: 065
  46. CLOFAZIMINE [Concomitant]
     Active Substance: CLOFAZIMINE
     Indication: Mycobacterium fortuitum infection
     Dosage: 50 MILLIGRAM,1 EVERY 1 DAYS
     Route: 048
  47. CLOFAZIMINE [Concomitant]
     Active Substance: CLOFAZIMINE
     Indication: Device related infection
  48. CILASTATIN SODIUM\IMIPENEM [Concomitant]
     Active Substance: CILASTATIN SODIUM\IMIPENEM
     Indication: Evidence based treatment
     Dosage: UNK
     Route: 042

REACTIONS (10)
  - Drug interaction [Recovered/Resolved]
  - Electrocardiogram QT prolonged [Recovered/Resolved]
  - Mycobacterial peritonitis [Recovered/Resolved]
  - Mycobacterium fortuitum infection [Recovered/Resolved]
  - Decreased appetite [Recovered/Resolved]
  - Device related infection [Recovered/Resolved]
  - Lymphopenia [Recovered/Resolved]
  - Nausea [Recovered/Resolved]
  - Peritonitis bacterial [Recovered/Resolved]
  - Off label use [Recovered/Resolved]
